APPROVED DRUG PRODUCT: SEVOFLURANE
Active Ingredient: SEVOFLURANE
Strength: 100%
Dosage Form/Route: LIQUID;INHALATION
Application: A214382 | Product #001 | TE Code: AN
Applicant: SHANDONG NEW TIME PHARMACEUTICAL CO LTD
Approved: Aug 18, 2023 | RLD: No | RS: No | Type: RX